FAERS Safety Report 21815597 (Version 1)
Quarter: 2023Q1

REPORT INFORMATION
  Report Type: Spontaneous
  Country: US (occurrence: None)
  Receive Date: 20230103
  Receipt Date: 20230103
  Transmission Date: 20230418
  Serious: No
  Sender: FDA-Public Use
  Company Number: None

PATIENT
  Age: 34 Year
  Sex: Female

DRUGS (1)
  1. DUPIXENT [Suspect]
     Active Substance: DUPILUMAB
     Indication: Hidradenitis
     Dosage: OTHER FREQUENCY : 2 ML Q 2 WKS;?
     Route: 058
     Dates: start: 202208

REACTIONS (1)
  - Back pain [None]

NARRATIVE: CASE EVENT DATE: 20221101
